FAERS Safety Report 14740245 (Version 1)
Quarter: 2018Q2

REPORT INFORMATION
  Report Type: Report from Study
  Country: US (occurrence: US)
  Receive Date: 20180410
  Receipt Date: 20180410
  Transmission Date: 20180711
  Serious: No
  Sender: FDA-Public Use
  Company Number: US-HETERO CORPORATE-HET2018US00274

PATIENT
  Age: 33 Year
  Sex: Female

DRUGS (6)
  1. TRUVADA [Suspect]
     Active Substance: EMTRICITABINE\TENOFOVIR DISOPROXIL FUMARATE
     Indication: HIV INFECTION
     Dosage: UNK
     Route: 048
     Dates: start: 20180207
  2. TRUVADA [Suspect]
     Active Substance: EMTRICITABINE\TENOFOVIR DISOPROXIL FUMARATE
     Indication: HEPATITIS B
  3. ISENTRESS [Suspect]
     Active Substance: RALTEGRAVIR POTASSIUM
     Indication: HEPATITIS B
  4. ISENTRESS [Suspect]
     Active Substance: RALTEGRAVIR POTASSIUM
     Indication: HIV INFECTION
     Dosage: UNK
     Route: 048
     Dates: start: 20180206, end: 20180207
  5. TENOFOVIR [Suspect]
     Active Substance: TENOFOVIR
     Indication: HIV INFECTION
     Dosage: UNK
     Route: 048
     Dates: end: 20180207
  6. TENOFOVIR [Suspect]
     Active Substance: TENOFOVIR
     Indication: HEPATITIS B

REACTIONS (1)
  - Exposure during pregnancy [Unknown]
